FAERS Safety Report 7211414-9 (Version None)
Quarter: 2010Q4

REPORT INFORMATION
  Report Type: 
  Country: None (occurrence: None)
  Receive Date: 20101223
  Receipt Date: 20101213
  Transmission Date: 20110411
  Serious: Yes (Hospitalization)
  Sender: FDA-Public Use
  Company Number: 017701

PATIENT
  Sex: Male

DRUGS (10)
  1. KEPPRA [Suspect]
     Dosage: (250 MG BID), (500 MG BID), (1000 MG BID), (2250 MG, 100MG IN MORNING AND 1250MG AT NIGHT),(1000 MG)
     Dates: start: 20091231, end: 20100101
  2. KEPPRA [Suspect]
     Dosage: (250 MG BID), (500 MG BID), (1000 MG BID), (2250 MG, 100MG IN MORNING AND 1250MG AT NIGHT),(1000 MG)
     Dates: start: 20100101, end: 20100101
  3. KEPPRA [Suspect]
     Dosage: (250 MG BID), (500 MG BID), (1000 MG BID), (2250 MG, 100MG IN MORNING AND 1250MG AT NIGHT),(1000 MG)
     Dates: start: 20100101, end: 20100101
  4. KEPPRA [Suspect]
     Dosage: (250 MG BID), (500 MG BID), (1000 MG BID), (2250 MG, 100MG IN MORNING AND 1250MG AT NIGHT),(1000 MG)
     Dates: start: 20100101
  5. LYRICA [Suspect]
     Dosage: (50 MG TID)
  6. LAMOTRIGINE [Suspect]
  7. FLOMATRA XL [Concomitant]
  8. SOLIFENACIN SUCCINATE [Concomitant]
  9. OMEPRAZOLE [Concomitant]
  10. DEXAMETHASONE [Concomitant]

REACTIONS (8)
  - ABNORMAL DREAMS [None]
  - CIRCUMSTANCE OR INFORMATION CAPABLE OF LEADING TO MEDICATION ERROR [None]
  - CONVULSION [None]
  - FALL [None]
  - FEELING ABNORMAL [None]
  - FEELING DRUNK [None]
  - INTERCEPTED DRUG DISPENSING ERROR [None]
  - VISUAL IMPAIRMENT [None]
